FAERS Safety Report 16360768 (Version 2)
Quarter: 2024Q1

REPORT INFORMATION
  Report Type: Spontaneous
  Country: US (occurrence: US)
  Receive Date: 20190528
  Receipt Date: 20240315
  Transmission Date: 20240410
  Serious: Yes (Hospitalization, Other)
  Sender: FDA-Public Use
  Company Number: US-AUROBINDO-AUR-APL-2019-029093

PATIENT
  Age: 63 Year
  Sex: Male

DRUGS (4)
  1. DOFETILIDE [Suspect]
     Active Substance: DOFETILIDE
     Indication: Atrial fibrillation
     Dosage: UNK
     Route: 065
  2. DOFETILIDE [Suspect]
     Active Substance: DOFETILIDE
     Indication: Coronary artery disease
  3. BUMEX [Concomitant]
     Active Substance: BUMETANIDE
     Indication: Coronary artery disease
     Dosage: UNK
     Route: 065
  4. BUMEX [Concomitant]
     Active Substance: BUMETANIDE
     Indication: Atrial fibrillation

REACTIONS (6)
  - Electrocardiogram ST segment elevation [Unknown]
  - Syncope [Unknown]
  - Blood creatinine increased [Unknown]
  - Hypokalaemia [Unknown]
  - Toxicity to various agents [Unknown]
  - Ventricular tachycardia [Recovered/Resolved]
